FAERS Safety Report 4850254-2 (Version None)
Quarter: 2005Q4

REPORT INFORMATION
  Report Type: 
  Country: None (occurrence: None)
  Receive Date: 20051207
  Receipt Date: 20051207
  Transmission Date: 20060501
  Serious: No
  Sender: FDA-Public Use
  Company Number: None

PATIENT

DRUGS (3)
  1. TUSSIONEX [Suspect]
     Dosage: SUSPENSION, EXTENDED RELEASE
  2. ORAL SYRINGE [Suspect]
  3. LIFESHIELD EXTENSION SET WITH CLAVE AND OPTION-LOK, 8 INCH [Suspect]

REACTIONS (2)
  - INCORRECT ROUTE OF DRUG ADMINISTRATION [None]
  - MEDICATION ERROR [None]
